FAERS Safety Report 14497196 (Version 2)
Quarter: 2018Q1

REPORT INFORMATION
  Report Type: Report from Study
  Country: None (occurrence: US)
  Receive Date: 20180207
  Receipt Date: 20180222
  Transmission Date: 20180509
  Serious: No
  Sender: FDA-Public Use
  Company Number: US-ABBVIE-18K-163-2246678-00

PATIENT
  Age: 68 Year
  Sex: Male
  Weight: 97.61 kg

DRUGS (1)
  1. HUMIRA [Suspect]
     Active Substance: ADALIMUMAB
     Indication: PSORIASIS
     Route: 058
     Dates: start: 2014, end: 2016

REACTIONS (5)
  - Neuritis [Not Recovered/Not Resolved]
  - Herpes zoster [Recovered/Resolved]
  - Psoriasis [Unknown]
  - Nerve injury [Not Recovered/Not Resolved]
  - Hypoaesthesia [Not Recovered/Not Resolved]

NARRATIVE: CASE EVENT DATE: 2016
